FAERS Safety Report 5847611-4 (Version None)
Quarter: 2008Q3

REPORT INFORMATION
  Report Type: 
  Country: None (occurrence: None)
  Receive Date: 20080815
  Receipt Date: 20080815
  Transmission Date: 20090109
  Serious: Yes (Hospitalization)
  Sender: FDA-Public Use
  Company Number: None

PATIENT
  Age: 36 Year
  Sex: Female
  Weight: 95 kg

DRUGS (1)
  1. SUBOXONE [Suspect]
     Dates: start: 20080814, end: 20080814

REACTIONS (4)
  - DIZZINESS [None]
  - DRUG DISPENSING ERROR [None]
  - MEDICATION ERROR [None]
  - NAUSEA [None]
